FAERS Safety Report 23371352 (Version 2)
Quarter: 2024Q1

REPORT INFORMATION
  Report Type: Report from Study
  Country: CN (occurrence: CN)
  Receive Date: 20240105
  Receipt Date: 20240117
  Transmission Date: 20240409
  Serious: No
  Sender: FDA-Public Use
  Company Number: CN-PFIZER INC-PV202400000044

PATIENT
  Age: 60 Year
  Sex: Female

DRUGS (15)
  1. NIRMATRELVIR\RITONAVIR [Suspect]
     Active Substance: NIRMATRELVIR\RITONAVIR
     Indication: COVID-19 treatment
     Dosage: [NIRMATRELVIR 300 MG]/[RITONAVIR 100 MG], 2X/DAY
     Dates: start: 20220417
  2. HERBALS\MENTHOL [Concomitant]
     Active Substance: HERBALS\MENTHOL
     Indication: Influenza
     Dosage: UNK
     Route: 048
     Dates: start: 20220409, end: 20220420
  3. HERBALS\MENTHOL [Concomitant]
     Active Substance: HERBALS\MENTHOL
     Dosage: UNK
     Route: 048
     Dates: start: 20220421, end: 20220423
  4. POTASSIUM CHLORIDE [Concomitant]
     Active Substance: POTASSIUM CHLORIDE
     Indication: Mineral supplementation
     Dosage: EXTENDED RELEASE TABLET
     Route: 048
     Dates: start: 20220410, end: 20220420
  5. POTASSIUM CHLORIDE [Concomitant]
     Active Substance: POTASSIUM CHLORIDE
     Dosage: EXTENDED RELEASE TABLET
     Route: 048
     Dates: start: 20220421, end: 20220423
  6. OMEPRAZOLE [Concomitant]
     Active Substance: OMEPRAZOLE
     Indication: Prophylaxis
     Dosage: ENTERIC COATED CAPSULES
     Route: 048
     Dates: start: 20220411, end: 20220420
  7. OMEPRAZOLE [Concomitant]
     Active Substance: OMEPRAZOLE
     Dosage: ENTERIC COATED CAPSULES
     Route: 048
     Dates: start: 20220421, end: 20220423
  8. ACARBOSE [Concomitant]
     Active Substance: ACARBOSE
     Indication: Blood glucose decreased
     Dosage: UNK
     Route: 048
     Dates: start: 20220416
  9. METFORMIN HYDROCHLORIDE [Concomitant]
     Active Substance: METFORMIN HYDROCHLORIDE
     Indication: Blood glucose decreased
     Dosage: UNK
     Route: 048
     Dates: start: 20220416
  10. AMLODIPINE BESYLATE [Concomitant]
     Active Substance: AMLODIPINE BESYLATE
     Indication: Blood pressure decreased
     Dosage: UNK
     Route: 048
     Dates: start: 20220412
  11. ASPIRIN [Concomitant]
     Active Substance: ASPIRIN
     Indication: Antiplatelet therapy
     Dosage: ENTERIC-COATED
     Route: 048
     Dates: start: 20220417, end: 20220420
  12. ASPIRIN [Concomitant]
     Active Substance: ASPIRIN
     Dosage: ENTERIC-COATED
     Route: 048
     Dates: start: 20220421, end: 20220423
  13. CALCIUM CARBONATE\CHOLECALCIFEROL [Concomitant]
     Active Substance: CALCIUM CARBONATE\CHOLECALCIFEROL
     Indication: Mineral supplementation
     Dosage: PARTICLES
     Route: 048
     Dates: start: 20220410, end: 2022
  14. METHOXYPHENAMINE [Concomitant]
     Active Substance: METHOXYPHENAMINE
     Indication: Cough
     Dosage: COMPOUND METHOXYPHENAMINE
     Route: 048
     Dates: start: 20220415, end: 2022
  15. HYALURONATE SODIUM [Concomitant]
     Active Substance: HYALURONATE SODIUM
     Dosage: UNK
     Route: 047
     Dates: start: 20220421, end: 2022

REACTIONS (1)
  - Overdose [Unknown]
